FAERS Safety Report 18385022 (Version 3)
Quarter: 2023Q4

REPORT INFORMATION
  Report Type: Spontaneous
  Country: ES (occurrence: ES)
  Receive Date: 20201015
  Receipt Date: 20231208
  Transmission Date: 20240110
  Serious: Yes (Hospitalization, Other)
  Sender: FDA-Public Use
  Company Number: ES-KRKA-ES2020K15668LIT

PATIENT
  Age: 74 Year
  Sex: Male

DRUGS (10)
  1. ENALAPRIL [Suspect]
     Active Substance: ENALAPRIL
     Indication: Left ventricular failure
     Dosage: 10 MILLIGRAM
     Route: 065
     Dates: start: 201707, end: 201708
  2. EPLERENONE [Suspect]
     Active Substance: EPLERENONE
     Indication: Left ventricular failure
     Dosage: UNK
     Route: 065
  3. EPLERENONE [Suspect]
     Active Substance: EPLERENONE
     Dosage: 25 MILLIGRAM
     Route: 065
     Dates: start: 201707, end: 201708
  4. NEBIVOLOL [Suspect]
     Active Substance: NEBIVOLOL
     Indication: Left ventricular failure
     Dosage: UNK (TITRATED UP TO 10MG/DAY)
     Route: 065
     Dates: start: 201707
  5. RAMIPRIL [Suspect]
     Active Substance: RAMIPRIL
     Indication: Product used for unknown indication
     Dosage: 5 MILLIGRAM, ONCE A DAY (5 MG, PER DAY)
     Route: 065
  6. RAMIPRIL [Suspect]
     Active Substance: RAMIPRIL
     Dosage: 2.5 MILLIGRAM, ONCE A DAY
     Route: 065
  7. RAMIPRIL [Suspect]
     Active Substance: RAMIPRIL
     Dosage: 1.25 MILLIGRAM, ONCE A DAY (1.25 MG, PER DAY)
     Route: 065
  8. CALCIUM POLYSTYRENE SULFONATE [Suspect]
     Active Substance: CALCIUM POLYSTYRENE SULFONATE
     Indication: Product used for unknown indication
     Dosage: UNK
     Route: 065
  9. PATIROMER [Concomitant]
     Active Substance: PATIROMER
     Indication: Hyperkalaemia
     Dosage: 8.4 GRAM, ONCE A DAY
     Route: 065
  10. PATIROMER [Concomitant]
     Active Substance: PATIROMER
     Dosage: 16.8 MILLIGRAM, ONCE A DAY (16.8 G, PER DAY)
     Route: 065

REACTIONS (5)
  - Renal impairment [Recovering/Resolving]
  - Hyperkalaemia [Recovered/Resolved]
  - Gastrointestinal disorder [Unknown]
  - Acute pulmonary oedema [Unknown]
  - Hypotension [Unknown]

NARRATIVE: CASE EVENT DATE: 20170701
